FAERS Safety Report 22354711 (Version 1)
Quarter: 2023Q2

REPORT INFORMATION
  Report Type: Spontaneous
  Country: US (occurrence: US)
  Receive Date: 20230523
  Receipt Date: 20230523
  Transmission Date: 20230721
  Serious: No
  Sender: FDA-Public Use
  Company Number: US-SA-SAC20230523000376

PATIENT
  Age: 62 Year
  Sex: Female
  Weight: 60.3 kg

DRUGS (12)
  1. DUPIXENT [Suspect]
     Active Substance: DUPILUMAB
     Indication: Nasal polyps
     Dosage: 300 MG, QOW
     Route: 058
     Dates: start: 2023
  2. MAGNESIUM [Concomitant]
     Active Substance: MAGNESIUM
  3. CLOBETASOL [Concomitant]
     Active Substance: CLOBETASOL
  4. FLUCONAZOLE [Concomitant]
     Active Substance: FLUCONAZOLE
  5. TRAZODONE HCL [Concomitant]
     Active Substance: TRAZODONE HYDROCHLORIDE
  6. ZYRTEC [Concomitant]
     Active Substance: CETIRIZINE HYDROCHLORIDE
  7. FISH OIL\OMEGA-3 FATTY ACIDS [Concomitant]
     Active Substance: FISH OIL\OMEGA-3 FATTY ACIDS
  8. FLONASE ALLERGY RELIEF [Concomitant]
     Active Substance: FLUTICASONE PROPIONATE
  9. CALCIUM\CHOLECALCIFEROL [Concomitant]
     Active Substance: CALCIUM\CHOLECALCIFEROL
  10. HUMALOG [Concomitant]
     Active Substance: INSULIN LISPRO
  11. TOUJEO [Concomitant]
     Active Substance: INSULIN GLARGINE
  12. MUPIROCIN [Concomitant]
     Active Substance: MUPIROCIN

REACTIONS (3)
  - Diarrhoea [Unknown]
  - Vomiting [Unknown]
  - Vertigo [Unknown]
